FAERS Safety Report 9154416 (Version 1)
Quarter: 2013Q1

REPORT INFORMATION
  Report Type: Spontaneous
  Country: US (occurrence: US)
  Receive Date: 20130311
  Receipt Date: 20130311
  Transmission Date: 20140127
  Serious: Yes (Other)
  Sender: FDA-Public Use
  Company Number: US-SANOFI-AVENTIS-2013SA023648

PATIENT
  Age: 77 None
  Sex: Male

DRUGS (1)
  1. ENOXAPARIN SODIUM - WINTHROP [Suspect]
     Indication: PROPHYLAXIS
     Dates: start: 2012

REACTIONS (5)
  - Post procedural infection [Unknown]
  - Fall [Unknown]
  - Laceration [Unknown]
  - Injection site haemorrhage [Unknown]
  - Injection site mass [Unknown]
